FAERS Safety Report 5820227-1 (Version None)
Quarter: 2008Q3

REPORT INFORMATION
  Report Type: 
  Country: None (occurrence: None)
  Receive Date: 20080724
  Receipt Date: 20080723
  Transmission Date: 20090109
  Serious: Yes (Hospitalization)
  Sender: FDA-Public Use
  Company Number: PHEH1999US05349

PATIENT
  Sex: Male

DRUGS (3)
  1. RAD 666 RAD+ [Suspect]
     Dosage: 1.5 MG, BID
     Route: 048
     Dates: start: 19980822, end: 19991116
  2. NEORAL [Suspect]
     Dosage: UNKNOWN
  3. PREDNISONE TAB [Suspect]
     Dosage: UNKNOWN

REACTIONS (4)
  - BACTERIAL INFECTION [None]
  - CHILLS [None]
  - LYMPHOCELE [None]
  - PYREXIA [None]
